FAERS Safety Report 7099484-2 (Version None)
Quarter: 2010Q4

REPORT INFORMATION
  Report Type: 
  Country: None (occurrence: None)
  Receive Date: 20101112
  Receipt Date: 20101104
  Transmission Date: 20110411
  Serious: Yes (Hospitalization)
  Sender: FDA-Public Use
  Company Number: FR-MERCK-1011FRA00019

PATIENT
  Age: 69 Year
  Sex: Male

DRUGS (9)
  1. PRIMAXIN [Suspect]
     Indication: SKIN NECROSIS
     Route: 042
     Dates: start: 20100830, end: 20101013
  2. CLOPIDOGREL BISULFATE [Concomitant]
     Route: 065
  3. PREGABALIN [Concomitant]
     Route: 065
  4. NEBIVOLOL HYDROCHLORIDE [Concomitant]
     Route: 065
  5. METFORMIN HYDROCHLORIDE [Concomitant]
     Route: 065
  6. FLUINDIONE [Concomitant]
     Route: 065
  7. TEICOPLANIN [Concomitant]
     Indication: SKIN NECROSIS
     Route: 065
     Dates: start: 20100729, end: 20100907
  8. VANCOMYCIN HYDROCHLORIDE [Concomitant]
     Indication: SKIN NECROSIS
     Route: 065
     Dates: start: 20100907, end: 20100930
  9. PROBENECID [Concomitant]
     Route: 065

REACTIONS (1)
  - EXTRAPYRAMIDAL DISORDER [None]
